FAERS Safety Report 25530287 (Version 1)
Quarter: 2025Q3

REPORT INFORMATION
  Report Type: Spontaneous
  Country: US (occurrence: US)
  Receive Date: 20250708
  Receipt Date: 20250708
  Transmission Date: 20251021
  Serious: No
  Sender: SANOFI AVENTIS
  Company Number: US-SA-2025SA190265

PATIENT
  Age: 49 Year
  Sex: Female

DRUGS (8)
  1. KEVZARA [Suspect]
     Active Substance: SARILUMAB
     Indication: Rheumatoid arthritis
     Dosage: 1 DF, QOW
     Route: 058
     Dates: start: 20241101
  2. CALCIUM [Concomitant]
     Active Substance: CALCIUM
  3. COLLAGENASE [Concomitant]
     Active Substance: COLLAGENASE CLOSTRIDIUM HISTOLYTICUM
  4. FOLIC ACID [Concomitant]
     Active Substance: FOLIC ACID
  5. METHOTREXATE [Concomitant]
     Active Substance: METHOTREXATE
  6. PREDNISONE [Concomitant]
     Active Substance: PREDNISONE
  7. SIMPONI [Concomitant]
     Active Substance: GOLIMUMAB
  8. VITAMIN D NOS [Concomitant]
     Active Substance: CHOLECALCIFEROL\ERGOCALCIFEROL

REACTIONS (3)
  - Infection [Unknown]
  - Injection site reaction [Unknown]
  - Drug ineffective [Unknown]
